FAERS Safety Report 15477358 (Version 2)
Quarter: 2018Q4

REPORT INFORMATION
  Report Type: Spontaneous
  Country: ES (occurrence: ES)
  Receive Date: 20181009
  Receipt Date: 20181214
  Transmission Date: 20190205
  Serious: Yes (Death, Life-Threatening, Hospitalization, Other)
  Sender: FDA-Public Use
  Company Number: ES-AMGEN-ESPSP2018137674

PATIENT
  Age: 67 Year
  Sex: Male

DRUGS (4)
  1. PANITUMUMAB [Suspect]
     Active Substance: PANITUMUMAB
     Indication: RECTAL CANCER METASTATIC
     Dosage: UNK UNK, CYCLICAL
     Route: 065
  2. 5-FU [Concomitant]
     Active Substance: FLUOROURACIL
     Indication: RECTAL CANCER METASTATIC
     Dosage: UNK UNK, CYCLICAL
  3. LEUCOVORIN. [Concomitant]
     Active Substance: LEUCOVORIN
     Indication: RECTAL CANCER METASTATIC
     Dosage: UNK UNK, CYCLICAL
  4. OXALIPLATIN. [Concomitant]
     Active Substance: OXALIPLATIN
     Indication: RECTAL CANCER METASTATIC
     Dosage: UNK UNK, CYCLICAL

REACTIONS (5)
  - Mucosal inflammation [Unknown]
  - Folliculitis [Unknown]
  - Respiratory failure [Unknown]
  - Multiple organ dysfunction syndrome [Fatal]
  - Pancytopenia [Unknown]
